FAERS Safety Report 22201131 (Version 1)
Quarter: 2023Q2

REPORT INFORMATION
  Report Type: Other
  Country: US (occurrence: None)
  Receive Date: 20230412
  Receipt Date: 20230412
  Transmission Date: 20230722
  Serious: Yes (Death)
  Sender: FDA-Public Use
  Company Number: US-ROCHE-3327997

PATIENT
  Age: 48 Year
  Sex: Male

DRUGS (3)
  1. AVASTIN [Suspect]
     Active Substance: BEVACIZUMAB
     Indication: Neuroendocrine carcinoma
     Dosage: INFUSE 400MG INTRAVENOUSLY ON DAY(S) 1 AND DAY(S) 15 EVERY 28 DAY(S)
     Route: 042
  2. TECENTRIQ [Suspect]
     Active Substance: ATEZOLIZUMAB
     Indication: Product used for unknown indication
     Dosage: INFUSE 1200MG INTRAVENOUSLY DAY 1 EVERY 21 DAY(S)
     Route: 041
  3. XELODA [Suspect]
     Active Substance: CAPECITABINE
     Indication: Product used for unknown indication
     Route: 048

REACTIONS (3)
  - Death [Fatal]
  - Off label use [Unknown]
  - Drug hypersensitivity [Unknown]

NARRATIVE: CASE EVENT DATE: 20230129
